FAERS Safety Report 9525423 (Version 1)
Quarter: 2013Q3

REPORT INFORMATION
  Report Type: Spontaneous
  Country: US (occurrence: None)
  Receive Date: 20130912
  Receipt Date: 20130912
  Transmission Date: 20140515
  Serious: Yes (Hospitalization)
  Sender: FDA-Public Use
  Company Number: IPN-00279

PATIENT
  Sex: Female

DRUGS (1)
  1. INNOPRAN XL [Suspect]
     Indication: HYPERTENSION

REACTIONS (4)
  - Local swelling [None]
  - Local swelling [None]
  - Spinal disorder [None]
  - Product substitution issue [None]
